FAERS Safety Report 15563120 (Version 3)
Quarter: 2018Q4

REPORT INFORMATION
  Report Type: Spontaneous
  Country: JP (occurrence: JP)
  Receive Date: 20181029
  Receipt Date: 20181219
  Transmission Date: 20190205
  Serious: Yes (Hospitalization, Other)
  Sender: FDA-Public Use
  Company Number: JP-JNJFOC-20181037394

PATIENT
  Age: 73 Year
  Sex: Male
  Weight: 63.9 kg

DRUGS (10)
  1. REBAMIPIDE [Concomitant]
     Active Substance: REBAMIPIDE
     Route: 065
     Dates: end: 20180428
  2. FAMOTIDINE. [Concomitant]
     Active Substance: FAMOTIDINE
     Route: 065
     Dates: end: 20180428
  3. GASTER [Concomitant]
     Active Substance: FAMOTIDINE
     Route: 065
  4. CARVEDILOL. [Concomitant]
     Active Substance: CARVEDILOL
     Route: 065
     Dates: end: 20180515
  5. MINODRONIC ACID [Concomitant]
     Active Substance: MINODRONIC ACID
     Route: 065
     Dates: end: 20180428
  6. XARELTO [Suspect]
     Active Substance: RIVAROXABAN
     Indication: ATRIAL FIBRILLATION
     Route: 048
     Dates: end: 20180510
  7. GASTER [Concomitant]
     Active Substance: FAMOTIDINE
     Route: 065
     Dates: end: 20180428
  8. XARELTO [Suspect]
     Active Substance: RIVAROXABAN
     Indication: ATRIAL FIBRILLATION
     Route: 048
     Dates: start: 20151014, end: 20151227
  9. LIMAPROST [Concomitant]
     Active Substance: LIMAPROST
     Route: 065
     Dates: end: 20180428
  10. AZOSEMIDE [Concomitant]
     Active Substance: AZOSEMIDE
     Route: 065
     Dates: end: 20180428

REACTIONS (6)
  - Haematuria [Unknown]
  - Haemorrhage [Unknown]
  - Drug-induced liver injury [Recovering/Resolving]
  - Varicose vein [Recovering/Resolving]
  - Nail bed bleeding [Unknown]
  - Cerebral artery embolism [Unknown]

NARRATIVE: CASE EVENT DATE: 2015
